FAERS Safety Report 17022047 (Version 1)
Quarter: 2019Q4

REPORT INFORMATION
  Report Type: Spontaneous
  Country: US (occurrence: US)
  Receive Date: 20191008
  Receipt Date: 20191008
  Transmission Date: 20200122
  Serious: Yes (Other)
  Sender: FDA-Public Use
  Company Number: None

PATIENT
  Age: 77 Year
  Sex: Female

DRUGS (1)
  1. IBRANCE [Suspect]
     Active Substance: PALBOCICLIB
     Route: 048
     Dates: start: 20190917, end: 20191005

REACTIONS (7)
  - Lacrimation increased [None]
  - White blood cell count decreased [None]
  - Neuropathy peripheral [None]
  - Decreased appetite [None]
  - Hypoaesthesia oral [None]
  - Rhinorrhoea [None]
  - Dysgeusia [None]

NARRATIVE: CASE EVENT DATE: 20191001
